FAERS Safety Report 5977441-4 (Version None)
Quarter: 2008Q4

REPORT INFORMATION
  Report Type: 
  Country: None (occurrence: None)
  Receive Date: 20081203
  Receipt Date: 20081201
  Transmission Date: 20090506
  Serious: Yes (Hospitalization)
  Sender: FDA-Public Use
  Company Number: A0758543A

PATIENT
  Age: 40 Year
  Sex: Male

DRUGS (2)
  1. ADVAIR HFA [Suspect]
     Indication: ASTHMA
     Dosage: 1PUFF TWICE PER DAY
     Route: 055
  2. ANTIBIOTICS [Concomitant]

REACTIONS (2)
  - ATRIAL FIBRILLATION [None]
  - LEFT ATRIAL DILATATION [None]
